FAERS Safety Report 20486980 (Version 2)
Quarter: 2022Q1

REPORT INFORMATION
  Report Type: Report from Study
  Country: US (occurrence: US)
  Receive Date: 20220217
  Receipt Date: 20220307
  Transmission Date: 20220423
  Serious: Yes (Other)
  Sender: FDA-Public Use
  Company Number: US-ABBVIE-21K-163-4205396-00

PATIENT
  Age: 64 Year
  Sex: Female
  Weight: 132.57 kg

DRUGS (3)
  1. HUMIRA [Suspect]
     Active Substance: ADALIMUMAB
     Indication: Psoriasis
     Route: 058
     Dates: start: 2016
  2. AMLODIPINE\OLMESARTAN [Concomitant]
     Active Substance: AMLODIPINE\OLMESARTAN
     Indication: Hypertension
  3. CELEBREX [Concomitant]
     Active Substance: CELECOXIB
     Indication: Arthralgia

REACTIONS (4)
  - Spinal operation [Unknown]
  - Intervertebral disc protrusion [Not Recovered/Not Resolved]
  - Back pain [Recovered/Resolved]
  - Fall [Recovered/Resolved]

NARRATIVE: CASE EVENT DATE: 20191001
